FAERS Safety Report 19147635 (Version 1)
Quarter: 2021Q2

REPORT INFORMATION
  Report Type: Spontaneous
  Country: US (occurrence: US)
  Receive Date: 20210416
  Receipt Date: 20210416
  Transmission Date: 20210717
  Serious: No
  Sender: FDA-Public Use
  Company Number: US-SEBELA IRELAND LIMITED-2020SEB00145

PATIENT
  Sex: Female
  Weight: 63.5 kg

DRUGS (2)
  1. IMURAN [Suspect]
     Active Substance: AZATHIOPRINE
     Dosage: 100 MG, 1X/DAY
     Dates: end: 20201204
  2. IMURAN [Suspect]
     Active Substance: AZATHIOPRINE
     Indication: SYSTEMIC LUPUS ERYTHEMATOSUS
     Dosage: 50 MG, 1X/DAY

REACTIONS (9)
  - Feeling abnormal [Unknown]
  - Fatigue [Unknown]
  - Drug ineffective for unapproved indication [Recovered/Resolved]
  - Confusional state [Unknown]
  - Swelling [Unknown]
  - Hair texture abnormal [Unknown]
  - Madarosis [Unknown]
  - Peripheral swelling [Unknown]
  - Alopecia [Unknown]
